FAERS Safety Report 25975555 (Version 2)
Quarter: 2025Q4

REPORT INFORMATION
  Report Type: Spontaneous
  Country: CN (occurrence: CN)
  Receive Date: 20251029
  Receipt Date: 20251103
  Transmission Date: 20260118
  Serious: Yes (Hospitalization, Other)
  Sender: PFIZER
  Company Number: CN-MLMSERVICE-20251016-PI678608-00101-1

PATIENT
  Age: 8 Decade
  Sex: Female

DRUGS (8)
  1. PACLITAXEL [Suspect]
     Active Substance: PACLITAXEL
     Indication: Cervix carcinoma
     Dosage: 270 MG, CYCLIC (FIRST CYCLE, ON DAY 1)
     Dates: start: 20240520, end: 2024
  2. PACLITAXEL [Suspect]
     Active Substance: PACLITAXEL
     Dosage: UNK, CYCLIC (SECOND CYCLE)
     Dates: start: 20240606, end: 2024
  3. PACLITAXEL [Suspect]
     Active Substance: PACLITAXEL
     Dosage: UNK, CYCLIC (THIRD CYCLE)
     Dates: start: 20240707, end: 202407
  4. PACLITAXEL [Suspect]
     Active Substance: PACLITAXEL
     Dosage: UNK, CYCLIC (FOURTH CYCLE)
     Dates: start: 20240731
  5. CISPLATIN [Suspect]
     Active Substance: CISPLATIN
     Indication: Cervix carcinoma
     Dosage: 70 MG, CYCLIC (FIRST CYCLE, ON DAY 1)
     Dates: start: 20240420, end: 2024
  6. CISPLATIN [Suspect]
     Active Substance: CISPLATIN
     Dosage: UNK, CYCLIC (SECOND CYCLE)
     Dates: start: 20240606, end: 2024
  7. CISPLATIN [Suspect]
     Active Substance: CISPLATIN
     Dosage: UNK, CYCLIC (THIRD CYCLE)
     Dates: start: 20240707, end: 202407
  8. CISPLATIN [Suspect]
     Active Substance: CISPLATIN
     Dosage: UNK, CYCLIC (FOURTH CYCLE)
     Dates: start: 20240731

REACTIONS (2)
  - Hyperthyroidism [Recovering/Resolving]
  - Off label use [Unknown]

NARRATIVE: CASE EVENT DATE: 20240420
